FAERS Safety Report 7556750-1 (Version None)
Quarter: 2011Q2

REPORT INFORMATION
  Report Type: 
  Country: None (occurrence: None)
  Receive Date: 20110620
  Receipt Date: 20110615
  Transmission Date: 20111010
  Serious: Yes (Life-Threatening, Hospitalization)
  Sender: FDA-Public Use
  Company Number: US-ASTRAZENECA-2011SE36803

PATIENT
  Age: 21724 Day
  Sex: Female
  Weight: 89.3 kg

DRUGS (21)
  1. VANDETANIB [Suspect]
     Indication: GLIOBLASTOMA
     Route: 048
     Dates: start: 20110111, end: 20110613
  2. ACETAMINOPHEN [Concomitant]
  3. DEXAMETHASONE [Concomitant]
  4. TEMODAR [Suspect]
     Indication: GLIOBLASTOMA
     Route: 048
     Dates: start: 20110517
  5. CLONAZEPAM [Concomitant]
  6. DILTIAZEM CD [Concomitant]
  7. DIPHENHYDRAMINE HCL [Concomitant]
     Route: 048
  8. FENOFIBRATE [Concomitant]
  9. GLUCOSAMINE [Concomitant]
  10. ALBUTEROL-IPRATROPIUM NEBULIZER [Concomitant]
  11. DULOZETINE [Concomitant]
  12. EZETIMIBE [Concomitant]
  13. DAPSONE [Concomitant]
  14. DECADRON [Suspect]
  15. RADIATION THERAPY [Suspect]
     Indication: GLIOBLASTOMA
  16. KCL IR [Concomitant]
  17. ASPIRIN [Concomitant]
  18. CALCIUM CARBONATE [Concomitant]
  19. LOSARTAN POTASSIUM [Concomitant]
  20. MULTI-VITAMIN [Concomitant]
  21. LANSOPRAZOLE [Concomitant]

REACTIONS (2)
  - MYOPATHY [None]
  - DYSPNOEA [None]
